FAERS Safety Report 9649723 (Version 1)
Quarter: 2013Q4

REPORT INFORMATION
  Report Type: Report from Study
  Country: VE (occurrence: VE)
  Receive Date: 20131028
  Receipt Date: 20131028
  Transmission Date: 20140711
  Serious: Yes (Other)
  Sender: FDA-Public Use
  Company Number: VE-ABBVIE-13P-178-1161151-00

PATIENT
  Age: 52 Year
  Sex: Female
  Weight: 85 kg

DRUGS (3)
  1. HUMIRA [Suspect]
     Indication: PSORIASIS
     Route: 058
     Dates: start: 20120308, end: 201210
  2. LECARDIP [Concomitant]
     Indication: HYPERTENSION
     Dosage: DAILY
     Route: 048
  3. APROVEL [Concomitant]
     Indication: HYPERTENSION
     Dosage: DAILY
     Route: 048

REACTIONS (1)
  - Tuberculin test positive [Recovered/Resolved]
